FAERS Safety Report 5145439-4 (Version None)
Quarter: 2006Q4

REPORT INFORMATION
  Report Type: 
  Country: None (occurrence: None)
  Receive Date: 20061101
  Receipt Date: 20061020
  Transmission Date: 20070319
  Serious: Yes (Other)
  Sender: FDA-Public Use
  Company Number: HQWYE384220OCT06

PATIENT
  Age: 82 Year
  Sex: Female

DRUGS (9)
  1. PANTOZOL [Suspect]
  2. ARTENE (IBUPROFEN MEGLUMINE) [Suspect]
  3. ASPIRIN [Suspect]
  4. BUMETANIDE [Suspect]
  5. DIOVAN HCT [Suspect]
     Indication: HYPERTENSION
     Dosage: ORAL
     Route: 048
     Dates: start: 20060601
  6. CONTUMAX (SODIUM PICOSULFATE) [Suspect]
  7. DOLO-NEUROBION (CYANOCOBALAMIN/METAMIZOLE SODIUM/PYRIDOXINE HYDROCHLOR [Suspect]
  8. GLUCOBAY [Suspect]
  9. PIRACETAM (PIRACETAM) [Suspect]

REACTIONS (4)
  - BLOOD GLUCOSE DECREASED [None]
  - DIZZINESS [None]
  - GASTRITIS [None]
  - VOMITING [None]
